FAERS Safety Report 10731432 (Version 1)
Quarter: 2015Q1

REPORT INFORMATION
  Report Type: Spontaneous
  Country: DE (occurrence: DE)
  Receive Date: 20150123
  Receipt Date: 20150123
  Transmission Date: 20150721
  Serious: Yes (Hospitalization, Other)
  Sender: FDA-Public Use
  Company Number: DE-AUROBINDO-AUR-APL-2015-00276

PATIENT
  Age: 52 Year
  Sex: Female

DRUGS (3)
  1. LORAZEPAM. [Suspect]
     Active Substance: LORAZEPAM
     Indication: PRODUCT USED FOR UNKNOWN INDICATION
     Dosage: 1-2 MG
     Route: 065
     Dates: start: 201002
  2. ZOLPIDEM [Suspect]
     Active Substance: ZOLPIDEM\ZOLPIDEM TARTRATE
     Indication: PRODUCT USED FOR UNKNOWN INDICATION
     Dosage: FIRSTLY TWO TABLETS OF 10 MG DAILY
     Route: 065
     Dates: start: 201002
  3. ZOLPIDEM [Suspect]
     Active Substance: ZOLPIDEM\ZOLPIDEM TARTRATE
     Dosage: 19 TABLETS OF 10 MG
     Route: 065
     Dates: start: 201206

REACTIONS (17)
  - Hyponatraemia [Recovered/Resolved]
  - Weight decreased [Recovered/Resolved]
  - Polydipsia [Recovered/Resolved]
  - Decreased appetite [Recovered/Resolved]
  - Asthenia [Recovering/Resolving]
  - Pallor [Unknown]
  - Increased appetite [Recovered/Resolved]
  - Overdose [Recovered/Resolved]
  - Depressed mood [Recovering/Resolving]
  - Suicidal ideation [Recovered/Resolved]
  - Restlessness [Recovered/Resolved]
  - Drug dependence [Recovering/Resolving]
  - Insomnia [Recovering/Resolving]
  - Mood swings [Recovered/Resolved]
  - Hyperkalaemia [Unknown]
  - Parosmia [Unknown]
  - Drug withdrawal syndrome [Recovered/Resolved]
